FAERS Safety Report 23733128 (Version 2)
Quarter: 2024Q2

REPORT INFORMATION
  Report Type: Spontaneous
  Country: US (occurrence: US)
  Receive Date: 20240411
  Receipt Date: 20240415
  Transmission Date: 20240715
  Serious: Yes (Other)
  Sender: FDA-Public Use
  Company Number: US-PFIZER INC-202400083609

PATIENT
  Age: 58 Year
  Sex: Female
  Weight: 54.43 kg

DRUGS (5)
  1. CHANTIX [Suspect]
     Active Substance: VARENICLINE TARTRATE
     Indication: Smoking cessation therapy
     Dosage: 1 DF, 2X/DAY
     Route: 048
     Dates: start: 202403, end: 20240408
  2. CHANTIX [Suspect]
     Active Substance: VARENICLINE TARTRATE
     Dosage: 1 DF
     Route: 048
     Dates: start: 20240409, end: 20240409
  3. OXYMORPHONE [Concomitant]
     Active Substance: OXYMORPHONE
     Indication: Migraine
     Dosage: 1 OR 10MG AS NEEDED, EXTENDED RELEASE
  4. TORADOL [Concomitant]
     Active Substance: KETOROLAC TROMETHAMINE
     Indication: Migraine
     Dosage: UP TO 30MG 3 TIMES A WEEK
     Route: 042
  5. KETAMINE [Concomitant]
     Active Substance: KETAMINE
     Indication: Migraine
     Dosage: 1 PUMP EACH NOSTRIL AS NEEDED
     Route: 045

REACTIONS (7)
  - Suicidal ideation [Recovering/Resolving]
  - Mental impairment [Not Recovered/Not Resolved]
  - Panic attack [Not Recovered/Not Resolved]
  - Depression [Not Recovered/Not Resolved]
  - Paranoia [Unknown]
  - Agitation [Recovering/Resolving]
  - Aggression [Recovering/Resolving]

NARRATIVE: CASE EVENT DATE: 20240101
